FAERS Safety Report 13607172 (Version 1)
Quarter: 2017Q2

REPORT INFORMATION
  Report Type: Spontaneous
  Country: US (occurrence: US)
  Receive Date: 20170602
  Receipt Date: 20170602
  Transmission Date: 20170830
  Serious: Yes (Hospitalization)
  Sender: FDA-Public Use
  Company Number: US-TEVA-772087USA

PATIENT
  Age: 52 Year
  Sex: Female
  Weight: 56 kg

DRUGS (7)
  1. PYRIDOXINE [Concomitant]
     Active Substance: PYRIDOXINE
     Dates: start: 20170228
  2. DELAMANID [Suspect]
     Active Substance: DELAMANID
     Indication: TUBERCULOSIS
     Dosage: 200 MILLIGRAM DAILY;
     Route: 048
     Dates: start: 20170221, end: 20170331
  3. LINEZOLID. [Suspect]
     Active Substance: LINEZOLID
     Indication: TUBERCULOSIS
     Dosage: 600 MILLIGRAM DAILY;
     Route: 048
     Dates: start: 20170221, end: 20170331
  4. PYRAZINAMIDE. [Concomitant]
     Active Substance: PYRAZINAMIDE
     Dates: start: 20170228
  5. LEVOXACIN [Concomitant]
     Active Substance: LEVOFLOXACIN
     Dates: start: 20170228
  6. DEXILANT [Concomitant]
     Active Substance: DEXLANSOPRAZOLE
     Dates: start: 20170228
  7. METOCLOPRAMIDE. [Concomitant]
     Active Substance: METOCLOPRAMIDE
     Dates: start: 20170324

REACTIONS (2)
  - Nausea [Unknown]
  - Abdominal discomfort [Recovered/Resolved]

NARRATIVE: CASE EVENT DATE: 20170328
